FAERS Safety Report 16984631 (Version 5)
Quarter: 2020Q1

REPORT INFORMATION
  Report Type: Spontaneous
  Country: US (occurrence: US)
  Receive Date: 20191101
  Receipt Date: 20200218
  Transmission Date: 20200409
  Serious: No
  Sender: FDA-Public Use
  Company Number: US-PFIZER INC-2019257668

PATIENT
  Age: 29 Year
  Sex: Female

DRUGS (2)
  1. LYRICA [Suspect]
     Active Substance: PREGABALIN
     Indication: FIBROMYALGIA
     Dosage: 75 MG, 3X/DAY (TID/1 TABLET TID)
  2. LYRICA [Suspect]
     Active Substance: PREGABALIN
     Indication: PAIN
     Dosage: 150 MG, 3X/DAY

REACTIONS (6)
  - Nausea [Unknown]
  - Hyperhidrosis [Unknown]
  - Maternal exposure during pregnancy [Unknown]
  - Vomiting [Unknown]
  - Intentional product misuse [Unknown]
  - Malaise [Unknown]
